FAERS Safety Report 26155953 (Version 1)
Quarter: 2025Q4

REPORT INFORMATION
  Report Type: Spontaneous
  Country: US (occurrence: None)
  Receive Date: 20251215
  Receipt Date: 20251215
  Transmission Date: 20260118
  Serious: No
  Sender: UCB
  Company Number: US-UCBSA-2025053764

PATIENT
  Age: 42 Year
  Weight: 61.6 kg

DRUGS (1)
  1. BIMZELX [Suspect]
     Active Substance: BIMEKIZUMAB-BKZX
     Indication: Psoriasis
     Dosage: 320 MILLIGRAM, EV 2 WEEKS(QOW)

REACTIONS (5)
  - Hot flush [Unknown]
  - Back pain [Unknown]
  - Menstrual disorder [Unknown]
  - Headache [Unknown]
  - Product dose omission issue [Unknown]
